FAERS Safety Report 7464521-X (Version None)
Quarter: 2011Q2

REPORT INFORMATION
  Report Type: 
  Country: None (occurrence: None)
  Receive Date: 20110509
  Receipt Date: 20110425
  Transmission Date: 20111010
  Serious: Yes (Hospitalization, Other)
  Sender: FDA-Public Use
  Company Number: JP-RANBAXY-2011RR-44162

PATIENT
  Sex: Female

DRUGS (80)
  1. NEUTROGIN [Suspect]
     Dosage: 100 UG, UNK
     Route: 058
     Dates: start: 20100712, end: 20100713
  2. CYCLOPHOSPHAMIDE [Suspect]
     Dosage: 810 MG, UNK
     Route: 065
     Dates: start: 20100823, end: 20100823
  3. LEVOTHYROXINE SODIUM [Suspect]
     Dosage: UNK
     Dates: start: 20100623, end: 20100628
  4. BISOPROLOL FUMARATE [Suspect]
     Dosage: UNK
     Dates: start: 20100622, end: 20100628
  5. CALCIUM LACTATE [Suspect]
     Dosage: UNK
     Route: 065
     Dates: start: 20100622, end: 20100628
  6. SERENAL [Suspect]
     Dosage: UNK
     Route: 065
     Dates: start: 20100629, end: 20100716
  7. ASPARA POTASSIUM [Suspect]
     Dosage: UNK
     Route: 065
     Dates: start: 20100629, end: 20100704
  8. LEVOGLUTAMIDE [Suspect]
     Dosage: UNK
     Route: 065
     Dates: start: 20100830, end: 20100830
  9. NEUTROGIN [Suspect]
     Dosage: 100 UG, UNK
     Route: 058
     Dates: start: 20100809, end: 20100810
  10. NEUTROGIN [Suspect]
     Dosage: 100 UG, UNK
     Route: 058
     Dates: start: 20100830, end: 20100831
  11. CYCLOPHOSPHAMIDE [Suspect]
     Indication: BREAST CANCER
     Dosage: 972 MG, UNK
     Route: 065
     Dates: start: 20100614, end: 20100614
  12. ALFAROL [Suspect]
     Dosage: UNK
     Route: 065
     Dates: start: 20100803, end: 20100830
  13. BISOPROLOL FUMARATE [Suspect]
     Dosage: UNK
     Dates: start: 20100615, end: 20100621
  14. LEVOFLOXACIN [Suspect]
     Indication: PRODUCT USED FOR UNKNOWN INDICATION
     Dosage: UNK
     Route: 065
     Dates: end: 20100615
  15. LEVOFLOXACIN [Suspect]
     Dosage: UNK
     Route: 065
     Dates: start: 20100726, end: 20100728
  16. BIO THREE [Suspect]
     Dosage: UNK
     Route: 065
     Dates: start: 20100809, end: 20100815
  17. SERENAL [Suspect]
     Indication: PRODUCT USED FOR UNKNOWN INDICATION
     Dosage: UNK
     Route: 065
     Dates: end: 20100621
  18. SERENAL [Suspect]
     Dosage: UNK
     Dates: start: 20100802, end: 20100822
  19. DECADRON [Suspect]
     Dosage: UNK
     Route: 065
     Dates: start: 20100705, end: 20100706
  20. HACHIAZULE [Suspect]
     Indication: PRODUCT USED FOR UNKNOWN INDICATION
     Dosage: UNK
     Route: 065
     Dates: end: 20100614
  21. LOXONIN [Suspect]
     Indication: PRODUCT USED FOR UNKNOWN INDICATION
     Dosage: UNK
     Route: 065
     Dates: end: 20100618
  22. LOXONIN [Suspect]
     Dosage: UNK
     Route: 065
     Dates: start: 20100705, end: 20100709
  23. LOXONIN [Suspect]
     Dosage: UNK
     Route: 065
     Dates: start: 20100802, end: 20100806
  24. LOXONIN [Suspect]
     Dosage: UNK
     Route: 065
     Dates: start: 20100809, end: 20100827
  25. LEVOGLUTAMIDE [Suspect]
     Indication: PRODUCT USED FOR UNKNOWN INDICATION
     Dosage: UNK
     Route: 065
     Dates: end: 20100618
  26. LEVOGLUTAMIDE [Suspect]
     Dosage: UNK
     Route: 065
     Dates: start: 20100802, end: 20100806
  27. NATEGLINIDE [Suspect]
     Indication: PRODUCT USED FOR UNKNOWN INDICATION
     Dosage: UNK
     Route: 065
     Dates: end: 20100715
  28. LEVOTHYROXINE SODIUM [Suspect]
     Dosage: UNK
     Dates: start: 20100803, end: 20100830
  29. BIO THREE [Suspect]
     Dosage: UNK
     Route: 065
     Dates: start: 20100712, end: 20100718
  30. BIO THREE [Suspect]
     Dosage: UNK
     Route: 065
     Dates: start: 20100823, end: 20100830
  31. ASPARA POTASSIUM [Suspect]
     Dosage: UNK
     Dates: start: 20100616, end: 20100621
  32. DECADRON [Suspect]
     Indication: PRODUCT USED FOR UNKNOWN INDICATION
     Dosage: UNK
     Route: 065
     Dates: end: 20100615
  33. DECADRON [Suspect]
     Dosage: UNK
     Route: 065
     Dates: start: 20100823, end: 20100824
  34. LEVOGLUTAMIDE [Suspect]
     Dosage: UNK
     Route: 065
     Dates: start: 20100621, end: 20100625
  35. GUAIAZULENE [Suspect]
     Indication: PRODUCT USED FOR UNKNOWN INDICATION
     Dosage: UNK
     Route: 065
     Dates: start: 20100624, end: 20100624
  36. CYCLOPHOSPHAMIDE [Suspect]
     Dosage: 810 MG, UNK
     Route: 065
     Dates: start: 20100705, end: 20100705
  37. CYCLOPHOSPHAMIDE [Suspect]
     Dosage: 810 MG, UNK
     Route: 065
     Dates: start: 20100802, end: 20100802
  38. LEVOTHYROXINE SODIUM [Suspect]
     Indication: PRODUCT USED FOR UNKNOWN INDICATION
     Dosage: UNK
     Route: 065
     Dates: end: 20100621
  39. LEVOTHYROXINE SODIUM [Suspect]
     Dosage: UNK
     Route: 065
     Dates: start: 20100622, end: 20100622
  40. SERENAL [Suspect]
     Dosage: UNK
     Route: 065
     Dates: start: 20100622, end: 20100628
  41. ASPARA POTASSIUM [Suspect]
     Dosage: UNK
     Route: 065
     Dates: start: 20100622, end: 20100622
  42. LOXONIN [Suspect]
     Dosage: UNK
     Route: 065
     Dates: start: 20100726, end: 20100730
  43. LOXONIN [Suspect]
     Dosage: UNK
     Route: 065
     Dates: start: 20100830, end: 20100830
  44. LEVOGLUTAMIDE [Suspect]
     Dosage: UNK
     Route: 065
     Dates: start: 20100726, end: 20100730
  45. GABAPENTIN [Suspect]
     Indication: PRODUCT USED FOR UNKNOWN INDICATION
     Dosage: UNK
     Route: 065
     Dates: start: 20100816, end: 20100822
  46. TAXOTERE [Suspect]
     Indication: BREAST CANCER
     Dosage: 121 MG, UNK
     Route: 065
     Dates: start: 20100614, end: 20100614
  47. TAXOTERE [Suspect]
     Dosage: 97 MG, UNK
     Route: 065
     Dates: start: 20100823, end: 20100823
  48. NEO-MERCAZOLE TAB [Suspect]
     Indication: PRODUCT USED FOR UNKNOWN INDICATION
     Dosage: UNK
     Route: 065
     Dates: end: 20100622
  49. LEVOTHYROXINE SODIUM [Suspect]
     Dosage: UNK
     Dates: start: 20100602, end: 20100801
  50. BISOPROLOL FUMARATE [Suspect]
     Dosage: UNK
     Dates: start: 20100629, end: 20100711
  51. LEVOFLOXACIN [Suspect]
     Dosage: UNK
     Dates: start: 20100830, end: 20100830
  52. LOPEMIN [Suspect]
     Indication: PRODUCT USED FOR UNKNOWN INDICATION
     Dosage: UNK
     Dates: start: 20100624, end: 20100628
  53. ZOFRAN [Suspect]
     Dosage: UNK
     Route: 065
     Dates: start: 20100802, end: 20100806
  54. BIO THREE [Suspect]
     Dosage: UNK
     Route: 065
     Dates: start: 20100726, end: 20100801
  55. GABAPENTIN [Suspect]
     Dosage: UNK
     Route: 065
     Dates: start: 20100830, end: 20100830
  56. NEUTROGIN [Suspect]
     Indication: FEBRILE NEUTROPENIA
     Dosage: 100 UG, UNK
     Route: 058
     Dates: start: 20100621, end: 20100622
  57. LEVOTHYROXINE SODIUM [Suspect]
     Dosage: UNK
     Dates: start: 20100802, end: 20100802
  58. ALFAROL [Suspect]
     Dosage: UNK
     Route: 065
     Dates: start: 20100629, end: 20100801
  59. ASPARA POTASSIUM [Suspect]
     Indication: PRODUCT USED FOR UNKNOWN INDICATION
     Dosage: UNK
     Route: 065
     Dates: end: 20100615
  60. LOXONIN [Suspect]
     Dosage: UNK
     Route: 065
     Dates: start: 20100621, end: 20100625
  61. VOLTAREN [Suspect]
     Indication: PRODUCT USED FOR UNKNOWN INDICATION
     Dosage: UNK
     Route: 065
     Dates: end: 20100614
  62. LEVOGLUTAMIDE [Suspect]
     Dosage: UNK
     Route: 065
     Dates: start: 20100705, end: 20100709
  63. LEVOGLUTAMIDE [Suspect]
     Dosage: UNK
     Route: 065
     Dates: start: 20100712, end: 20100716
  64. LEVOGLUTAMIDE [Suspect]
     Dosage: UNK
     Route: 065
     Dates: start: 20100809, end: 20100827
  65. NICARDIPINE HCL [Suspect]
     Indication: PRODUCT USED FOR UNKNOWN INDICATION
     Dosage: UNK
     Route: 065
     Dates: start: 20100622, end: 20100628
  66. TAXOTERE [Suspect]
     Dosage: 97 MG, UNK
     Route: 065
     Dates: start: 20100802, end: 20100802
  67. ALFAROL [Suspect]
     Dosage: UNK
     Route: 065
     Dates: start: 20100622, end: 20100628
  68. BISOPROLOL FUMARATE [Suspect]
     Indication: PRODUCT USED FOR UNKNOWN INDICATION
     Dosage: UNK
     Route: 065
     Dates: end: 20100614
  69. ZOFRAN [Suspect]
     Indication: PRODUCT USED FOR UNKNOWN INDICATION
     Dosage: UNK
     Route: 065
     Dates: start: 20100705, end: 20100709
  70. BIO THREE [Suspect]
     Indication: PRODUCT USED FOR UNKNOWN INDICATION
     Dosage: UNK
     Route: 065
     Dates: start: 20100621, end: 20100711
  71. BIO THREE [Suspect]
     Dosage: UNK
     Route: 065
     Dates: start: 20100802, end: 20100808
  72. CALCIUM LACTATE [Suspect]
     Indication: PRODUCT USED FOR UNKNOWN INDICATION
     Dosage: UNK
     Route: 065
     Dates: end: 20100621
  73. TAXOTERE [Suspect]
     Dosage: 97 MG, UNK
     Route: 065
     Dates: start: 20100705, end: 20100705
  74. ALFAROL [Suspect]
     Indication: PRODUCT USED FOR UNKNOWN INDICATION
     Dosage: UNK
     Route: 065
     Dates: end: 20100621
  75. ALFAROL [Suspect]
     Dosage: UNK
     Route: 065
     Dates: start: 20100802, end: 20100802
  76. MEROPENEM [Suspect]
     Indication: PRODUCT USED FOR UNKNOWN INDICATION
     Dosage: 01 G, UNK
     Route: 065
     Dates: start: 20100622, end: 20100624
  77. TRASTUZUMAB [Suspect]
     Indication: BREAST CANCER
     Dosage: 253 UG, 1/WEEK
     Route: 065
     Dates: start: 20100614, end: 20100614
  78. TRASTUZUMAB [Suspect]
     Dosage: 126 UG, 1/WEEK
     Route: 065
     Dates: start: 20100621, end: 20100830
  79. DECADRON [Suspect]
     Dosage: UNK
     Route: 065
     Dates: start: 20100802, end: 20100803
  80. LOXONIN [Suspect]
     Dosage: UNK
     Route: 065
     Dates: start: 20100712, end: 20100716

REACTIONS (16)
  - COUGH [None]
  - OROPHARYNGEAL PAIN [None]
  - MALAISE [None]
  - ARTHRALGIA [None]
  - FEBRILE NEUTROPENIA [None]
  - WHITE BLOOD CELL COUNT DECREASED [None]
  - INTERSTITIAL LUNG DISEASE [None]
  - BRONCHITIS [None]
  - MUSCULOSKELETAL STIFFNESS [None]
  - PYREXIA [None]
  - DYSPNOEA [None]
  - RALES [None]
  - RHEUMATOID ARTHRITIS [None]
  - C-REACTIVE PROTEIN INCREASED [None]
  - NEUTROPHIL COUNT DECREASED [None]
  - BLOOD LACTATE DEHYDROGENASE INCREASED [None]
